FAERS Safety Report 8899731 (Version 1)
Quarter: 2012Q4

REPORT INFORMATION
  Report Type: 
  Country: US (occurrence: US)
  Receive Date: 20121108
  Receipt Date: 20121108
  Transmission Date: 20130627
  Serious: No
  Sender: FDA-Public Use
  Company Number: US-AMGEN-USASP2012026363

PATIENT
  Age: 50 Year
  Sex: Female
  Weight: 70.3 kg

DRUGS (5)
  1. ENBREL [Suspect]
     Indication: PSORIATIC ARTHROPATHY
     Dosage: 50 mg, 2 times/wk
     Route: 058
     Dates: start: 20111201
  2. ENBREL [Suspect]
     Indication: PSORIASIS
  3. PAXIL [Concomitant]
     Dosage: 10 mg, UNK
  4. MOBIC [Concomitant]
     Dosage: 7.5 mg, UNK
  5. BENICAR [Concomitant]
     Dosage: 20 mg, UNK

REACTIONS (8)
  - Respiratory tract congestion [Recovered/Resolved]
  - Pain [Recovered/Resolved]
  - Cough [Recovered/Resolved]
  - Pyrexia [Recovered/Resolved]
  - Injection site swelling [Not Recovered/Not Resolved]
  - Injection site erythema [Not Recovered/Not Resolved]
  - Viral infection [Recovered/Resolved]
  - Injection site reaction [Unknown]
